FAERS Safety Report 7245905-1 (Version None)
Quarter: 2011Q1

REPORT INFORMATION
  Report Type: 
  Country: None (occurrence: None)
  Receive Date: 20110126
  Receipt Date: 20050930
  Transmission Date: 20110831
  Serious: Yes (Other)
  Sender: FDA-Public Use
  Company Number: PHHY2005CL02226

PATIENT
  Age: 75 Year
  Sex: Female

DRUGS (1)
  1. TAREG [Suspect]

REACTIONS (2)
  - LOSS OF CONSCIOUSNESS [None]
  - OSTEOARTHRITIS [None]
